FAERS Safety Report 9814673 (Version 1)
Quarter: 2014Q1

REPORT INFORMATION
  Report Type: Spontaneous
  Country: US (occurrence: US)
  Receive Date: 20140113
  Receipt Date: 20140113
  Transmission Date: 20141002
  Serious: Yes (Death)
  Sender: FDA-Public Use
  Company Number: CHPA2014US000656

PATIENT
  Age: 92 Year
  Sex: Female

DRUGS (1)
  1. VOLTAREN GEL [Suspect]
     Indication: ARTHRITIS
     Dosage: UNK
     Route: 061
     Dates: start: 2012, end: 2012

REACTIONS (5)
  - Cardiac failure [Fatal]
  - Dyspnoea [Fatal]
  - Dementia [Fatal]
  - Underdose [Unknown]
  - Wrong technique in drug usage process [Unknown]
